FAERS Safety Report 6248952-1 (Version None)
Quarter: 2009Q2

REPORT INFORMATION
  Report Type: 
  Country: None (occurrence: None)
  Receive Date: 20090625
  Receipt Date: 20090615
  Transmission Date: 20091009
  Serious: Yes (Death, Hospitalization)
  Sender: FDA-Public Use
  Company Number: 2009AP002406

PATIENT
  Age: 83 Year
  Sex: Male

DRUGS (1)
  1. PAROXETINE HYDROCHLORIDE [Suspect]
     Indication: DEPRESSION
     Dosage: 20 MG; QD;

REACTIONS (7)
  - CONFUSIONAL STATE [None]
  - DECUBITUS ULCER [None]
  - DISEASE COMPLICATION [None]
  - HEPATITIS [None]
  - LIVER INJURY [None]
  - PYREXIA [None]
  - STUPOR [None]
